FAERS Safety Report 7914714-X (Version None)
Quarter: 2011Q4

REPORT INFORMATION
  Report Type: 
  Country: None (occurrence: None)
  Receive Date: 20111115
  Receipt Date: 20111110
  Transmission Date: 20120403
  Serious: Yes (Death)
  Sender: FDA-Public Use
  Company Number: PHHY2011AR099405

PATIENT
  Sex: Female

DRUGS (1)
  1. EXELON [Suspect]
     Indication: AMNESIA
     Dosage: 1 DF, (PATCH) PER DAY
     Route: 062

REACTIONS (1)
  - CARDIO-RESPIRATORY ARREST [None]
